FAERS Safety Report 11013842 (Version 2)
Quarter: 2015Q2

REPORT INFORMATION
  Report Type: Spontaneous
  Country: US (occurrence: US)
  Receive Date: 20150412
  Receipt Date: 20150525
  Transmission Date: 20150821
  Serious: No
  Sender: FDA-Public Use
  Company Number: US-JNJFOC-20140407194

PATIENT
  Sex: Female

DRUGS (1)
  1. TRAMCET [Suspect]
     Active Substance: ACETAMINOPHEN\TRAMADOL
     Indication: PAIN
     Dosage: ONE TABLET ONCE A DAY (BEFORE GOING TO BED)
     Route: 048
     Dates: start: 201403

REACTIONS (2)
  - Abdominal pain upper [Unknown]
  - Headache [Unknown]
